FAERS Safety Report 12612573 (Version 5)
Quarter: 2018Q3

REPORT INFORMATION
  Report Type: Spontaneous
  Country: US (occurrence: US)
  Receive Date: 20160801
  Receipt Date: 20180917
  Transmission Date: 20181010
  Serious: Yes (Hospitalization, Other)
  Sender: FDA-Public Use
  Company Number: US-DSJP-DSU-2016-125961

PATIENT

DRUGS (2)
  1. AZOR [Suspect]
     Active Substance: AMLODIPINE BESYLATE\OLMESARTAN MEDOXOMIL
     Indication: HYPERTENSION
     Dosage: 5/20MG, DAILY
     Route: 048
     Dates: start: 2008
  2. INSULIN [Concomitant]
     Active Substance: INSULIN NOS
     Indication: PRODUCT USED FOR UNKNOWN INDICATION
     Dosage: UNK

REACTIONS (10)
  - Gastrointestinal motility disorder [Unknown]
  - Impaired gastric emptying [Unknown]
  - Cholecystectomy [Unknown]
  - Acute kidney injury [Unknown]
  - Pancreatitis [Recovered/Resolved]
  - Gastrooesophageal reflux disease [Unknown]
  - Rectal polyp [Unknown]
  - Sprue-like enteropathy [Recovering/Resolving]
  - Haematemesis [Unknown]
  - Hiatus hernia [Unknown]

NARRATIVE: CASE EVENT DATE: 2010
